FAERS Safety Report 12180926 (Version 2)
Quarter: 2016Q1

REPORT INFORMATION
  Report Type: Report from Study
  Country: US (occurrence: US)
  Receive Date: 20160315
  Receipt Date: 20160325
  Transmission Date: 20160526
  Serious: Yes (Congenital Anomaly)
  Sender: FDA-Public Use
  Company Number: US-TEVA-615628USA

PATIENT
  Sex: Female

DRUGS (4)
  1. MACROBID [Concomitant]
     Active Substance: NITROFURANTOIN\NITROFURANTOIN MONOHYDRATE
     Indication: URINARY TRACT INFECTION
     Route: 064
     Dates: start: 20151023, end: 20151030
  2. RIBAVIRIN. [Suspect]
     Active Substance: RIBAVIRIN
     Route: 064
     Dates: start: 20150519, end: 20150801
  3. VITAFOL [Concomitant]
     Route: 064
     Dates: start: 20150924
  4. AMOXICILLIN. [Concomitant]
     Active Substance: AMOXICILLIN
     Indication: URINARY TRACT INFECTION
     Route: 064

REACTIONS (3)
  - Foetal exposure during pregnancy [Unknown]
  - Gastrointestinal disorder [Unknown]
  - Congenital uterine anomaly [Unknown]
